FAERS Safety Report 8378176-3 (Version None)
Quarter: 2012Q2

REPORT INFORMATION
  Report Type: 
  Country: None (occurrence: None)
  Receive Date: 20120522
  Receipt Date: 20120518
  Transmission Date: 20120825
  Serious: No
  Sender: FDA-Public Use
  Company Number: US-PFIZER INC-2012121413

PATIENT
  Sex: Female
  Weight: 54.422 kg

DRUGS (6)
  1. EFFEXOR XR [Suspect]
     Indication: ANXIETY
     Dosage: 150 MG, 1X/DAY
     Route: 048
     Dates: start: 20111101
  2. EFFEXOR XR [Suspect]
     Indication: PANIC ATTACK
     Dosage: 300 MG, 1X/DAY
     Route: 048
  3. CELEXA [Suspect]
     Indication: ANXIETY
  4. CELEXA [Suspect]
     Indication: PANIC ATTACK
     Dosage: 40 MG, 2X/DAY
     Dates: start: 20111201, end: 20111203
  5. EFFEXOR XR [Suspect]
     Indication: DEPRESSION
     Dosage: 75 MG, 1X/DAY
     Route: 048
  6. CELEXA [Suspect]
     Indication: DEPRESSION

REACTIONS (8)
  - PARAESTHESIA [None]
  - TREMOR [None]
  - DRUG INEFFECTIVE [None]
  - HYPERHIDROSIS [None]
  - MOOD ALTERED [None]
  - BEDRIDDEN [None]
  - PAIN [None]
  - MALAISE [None]
